FAERS Safety Report 6394941-6 (Version None)
Quarter: 2009Q4

REPORT INFORMATION
  Report Type: 
  Country: None (occurrence: None)
  Receive Date: 20091009
  Receipt Date: 20090929
  Transmission Date: 20100525
  Serious: Yes (Death)
  Sender: FDA-Public Use
  Company Number: JP-PFIZER INC-2009275625

PATIENT
  Age: 78 Year

DRUGS (9)
  1. CEFAMEZIN [Suspect]
     Indication: INFECTION
     Dosage: 1 G, 2X/DAY
     Route: 042
     Dates: start: 20090812, end: 20090817
  2. NEUTROGIN [Suspect]
     Indication: NEUTROPENIA
     Dosage: 100 UG, UNKNOWN/D
     Route: 058
     Dates: start: 20090812, end: 20090817
  3. SOLU-CORTEF [Suspect]
     Dosage: 100 MG, UNKNOWN/D
     Route: 042
     Dates: start: 20090812, end: 20090817
  4. PREDNISOLONE [Concomitant]
  5. ALLELOCK [Concomitant]
  6. MUCOSTA [Concomitant]
  7. TRYPTANOL [Concomitant]
  8. METHYCOBAL [Concomitant]
  9. OMEGACIN [Concomitant]

REACTIONS (3)
  - ERYTHEMA [None]
  - FACE OEDEMA [None]
  - HYPERTHERMIA [None]
